FAERS Safety Report 16850708 (Version 1)
Quarter: 2019Q3

REPORT INFORMATION
  Report Type: Spontaneous
  Country: US (occurrence: US)
  Receive Date: 20190802
  Receipt Date: 20190802
  Transmission Date: 20191005
  Serious: No
  Sender: FDA-Public Use
  Company Number: None

PATIENT
  Age: 56 Year
  Sex: Male

DRUGS (7)
  1. NIFEDIPINE. [Concomitant]
     Active Substance: NIFEDIPINE
  2. ACYCLOVIR. [Concomitant]
     Active Substance: ACYCLOVIR
  3. DEXAMETHASONE. [Concomitant]
     Active Substance: DEXAMETHASONE
  4. LENALIDOMIDE [Concomitant]
     Active Substance: LENALIDOMIDE
  5. ONDANSETRON [Concomitant]
     Active Substance: ONDANSETRON
  6. ALLOPURINOL. [Concomitant]
     Active Substance: ALLOPURINOL
  7. CARFILZOMIB [Suspect]
     Active Substance: CARFILZOMIB
     Indication: LEUKAEMIA
     Route: 042
     Dates: start: 20190314, end: 20190317

REACTIONS (7)
  - Pulmonary oedema [None]
  - Acute kidney injury [None]
  - Hypoxia [None]
  - Haemodialysis [None]
  - Pneumonia [None]
  - Thrombocytopenia [None]
  - Haemolytic anaemia [None]

NARRATIVE: CASE EVENT DATE: 20190317
